FAERS Safety Report 7899056-3 (Version None)
Quarter: 2011Q4

REPORT INFORMATION
  Report Type: 
  Country: None (occurrence: None)
  Receive Date: 20111107
  Receipt Date: 20111017
  Transmission Date: 20120403
  Serious: Yes (Hospitalization, Congenital Anomaly)
  Sender: FDA-Public Use
  Company Number: US-ROCHE-GNE323488

PATIENT

DRUGS (3)
  1. OMALIZUMAB [Suspect]
     Indication: PRODUCT USED FOR UNKNOWN INDICATION
     Dosage: 375 MG, UNK
     Route: 064
     Dates: start: 20060324
  2. PREVACID [Concomitant]
     Dosage: 15 ML, BID
     Route: 048
     Dates: start: 20110407
  3. PREVACID [Concomitant]
     Indication: GASTROOESOPHAGEAL REFLUX DISEASE
     Dosage: 15 ML, BID
     Route: 048
     Dates: start: 20110323, end: 20110329

REACTIONS (3)
  - BRONCHIOLITIS [None]
  - BRONCHOMALACIA [None]
  - MATERNAL EXPOSURE TIMING UNSPECIFIED [None]
